FAERS Safety Report 9026533 (Version 1)
Quarter: 2012Q4

REPORT INFORMATION
  Report Type: Spontaneous
  Country: US (occurrence: None)
  Receive Date: 20121217
  Receipt Date: 20121217
  Transmission Date: 20130627
  Serious: Yes (Hospitalization)
  Sender: FDA-Public Use
  Company Number: None

PATIENT
  Age: 85 Year
  Sex: Female
  Weight: 49.9 kg

DRUGS (1)
  1. CYMBALTA [Suspect]
     Indication: DEPRESSION
     Dosage: 60 MG   1 PER DAY   MOUTH
     Route: 048
     Dates: start: 20121003, end: 20121118

REACTIONS (3)
  - Coordination abnormal [None]
  - Aphasia [None]
  - Confusional state [None]
